FAERS Safety Report 6758962-3 (Version None)
Quarter: 2010Q2

REPORT INFORMATION
  Report Type: 
  Country: None (occurrence: None)
  Receive Date: 20100607
  Receipt Date: 20100603
  Transmission Date: 20101027
  Serious: Yes (Other)
  Sender: FDA-Public Use
  Company Number: US-BRISTOL-MYERS SQUIBB COMPANY-15129190

PATIENT
  Sex: Male

DRUGS (2)
  1. ORENCIA [Suspect]
     Dosage: NO. OF INF:3
     Route: 042
  2. METHOTREXATE [Suspect]

REACTIONS (1)
  - MALIGNANT MELANOMA [None]
